FAERS Safety Report 13745922 (Version 1)
Quarter: 2017Q3

REPORT INFORMATION
  Report Type: Spontaneous
  Country: US (occurrence: US)
  Receive Date: 20170712
  Receipt Date: 20170712
  Transmission Date: 20171127
  Serious: No
  Sender: FDA-Public Use
  Company Number: US-GLAXOSMITHKLINE-US2017106697

PATIENT
  Sex: Male

DRUGS (16)
  1. OXYBUTYNIN [Concomitant]
     Active Substance: OXYBUTYNIN
  2. HALOPERIDOL. [Concomitant]
     Active Substance: HALOPERIDOL
  3. LEVAQUIN [Concomitant]
     Active Substance: LEVOFLOXACIN
  4. LIPITOR [Concomitant]
     Active Substance: ATORVASTATIN CALCIUM
  5. VALPROIC ACID. [Concomitant]
     Active Substance: VALPROIC ACID
  6. DALIRESP [Concomitant]
     Active Substance: ROFLUMILAST
     Dosage: UNK
  7. ADVAIR DISKUS [Suspect]
     Active Substance: FLUTICASONE PROPIONATE\SALMETEROL XINAFOATE
     Indication: CHRONIC OBSTRUCTIVE PULMONARY DISEASE
     Dosage: 1 PUFF(S), BID
     Route: 055
     Dates: start: 201611
  8. PROZAC [Concomitant]
     Active Substance: FLUOXETINE HYDROCHLORIDE
  9. TRIHEXYPHENIDYL [Concomitant]
     Active Substance: TRIHEXYPHENIDYL
  10. ALBUTEROL NEBULISER SOLUTION [Concomitant]
     Active Substance: ALBUTEROL SULFATE
  11. FLONASE ALLERGY RELIEF [Concomitant]
     Active Substance: FLUTICASONE PROPIONATE
  12. CLARITIN [Concomitant]
     Active Substance: LORATADINE
  13. CLONAZEPAM. [Concomitant]
     Active Substance: CLONAZEPAM
  14. PRILOSEC [Concomitant]
     Active Substance: OMEPRAZOLE MAGNESIUM
  15. SAW PALMETTO [Concomitant]
     Active Substance: HERBALS\SAW PALMETTO
  16. VENTOLIN HFA [Concomitant]
     Active Substance: ALBUTEROL SULFATE
     Dosage: UNK

REACTIONS (3)
  - Dyspnoea [Not Recovered/Not Resolved]
  - Wrong patient received medication [Unknown]
  - Drug ineffective [Unknown]
